FAERS Safety Report 22529340 (Version 1)
Quarter: 2023Q2

REPORT INFORMATION
  Report Type: Spontaneous
  Country: NP (occurrence: NP)
  Receive Date: 20230607
  Receipt Date: 20230607
  Transmission Date: 20230722
  Serious: Yes (Death, Hospitalization, Other)
  Sender: FDA-Public Use
  Company Number: NP-MLMSERVICE-20230524-4306488-1

PATIENT
  Age: 60 Year
  Sex: Female

DRUGS (7)
  1. CLOPIDOGREL [Suspect]
     Active Substance: CLOPIDOGREL BISULFATE
     Indication: Acute myocardial infarction
  2. HEPARIN [Suspect]
     Active Substance: HEPARIN SODIUM
     Indication: Acute myocardial infarction
     Dosage: ADDITIONAL 2000 UNITS INFUSED WITH 0.9% NORMAL SALINE
  3. ASPIRIN [Suspect]
     Active Substance: ASPIRIN
     Indication: Acute myocardial infarction
  4. ROSUVASTATIN [Concomitant]
     Active Substance: ROSUVASTATIN
     Indication: Acute myocardial infarction
  5. SALINE [Concomitant]
     Active Substance: SODIUM CHLORIDE
     Dosage: INFUSED WITH ADDITIONAL 2000 UNITS OF IV UFH?STRENGTH: 0.9%
  6. NOREPINEPHRINE [Concomitant]
     Active Substance: NOREPINEPHRINE
     Indication: Cardiogenic shock
  7. HEPARIN [Suspect]
     Active Substance: HEPARIN SODIUM
     Indication: Acute myocardial infarction
     Dosage: 5000 UNITS BOLUS

REACTIONS (2)
  - Haemorrhage intracranial [Fatal]
  - Cardio-respiratory arrest [Fatal]
